FAERS Safety Report 9432024 (Version 1)
Quarter: 2013Q3

REPORT INFORMATION
  Report Type: Spontaneous
  Country: CA (occurrence: None)
  Receive Date: 20130726
  Receipt Date: 20130726
  Transmission Date: 20140515
  Serious: Yes (Death)
  Sender: FDA-Public Use
  Company Number: LMI-2013-00287

PATIENT
  Age: 76 Year
  Sex: Male

DRUGS (1)
  1. DEFINITY [Suspect]
     Indication: ECHOCARDIOGRAM
     Dates: start: 20130711, end: 20130711

REACTIONS (6)
  - Cardiac arrest [None]
  - Pulseless electrical activity [None]
  - Ventricular fibrillation [None]
  - Bundle branch block right [None]
  - Atrioventricular block complete [None]
  - Brain injury [None]
